FAERS Safety Report 6107498-1 (Version None)
Quarter: 2009Q1

REPORT INFORMATION
  Report Type: 
  Country: None (occurrence: None)
  Receive Date: 20090302
  Receipt Date: 20080410
  Transmission Date: 20090719
  Serious: Yes (Other)
  Sender: FDA-Public Use
  Company Number: 2008NI0078

PATIENT
  Age: 81 Year
  Sex: Female

DRUGS (10)
  1. NITROLINGUAL PUMPSPRAY [Suspect]
     Indication: BLOOD PRESSURE
     Dosage: 1 TO 3 SPRAYS WITHIN 15 MINUTES, PRN, SUBLINGUAL
     Route: 060
     Dates: start: 20080407, end: 20080409
  2. PLAVIX [Concomitant]
  3. BLOOD THINNER [Concomitant]
  4. DIGOXIN [Concomitant]
  5. HEART STABILIZER [Concomitant]
  6. ASPIRIN [Concomitant]
  7. ATENOLOL [Concomitant]
  8. BENAZEPRIL HYDROCHLORIDE [Concomitant]
  9. TORESEMIDE [Concomitant]
  10. AVAPRO [Concomitant]

REACTIONS (8)
  - ASTHENIA [None]
  - DISORIENTATION [None]
  - DIZZINESS [None]
  - ELEVATED MOOD [None]
  - HEPATOCELLULAR INJURY [None]
  - HYPERHIDROSIS [None]
  - HYPERTENSION [None]
  - RESTLESSNESS [None]
